FAERS Safety Report 22622263 (Version 1)
Quarter: 2023Q2

REPORT INFORMATION
  Report Type: Spontaneous
  Country: US (occurrence: US)
  Receive Date: 20230620
  Receipt Date: 20230620
  Transmission Date: 20230722
  Serious: No
  Sender: FDA-Public Use
  Company Number: US-AMGEN-USASP2023105253

PATIENT
  Age: 54 Year
  Sex: Female

DRUGS (3)
  1. OTEZLA [Suspect]
     Active Substance: APREMILAST
     Indication: Psoriatic arthropathy
     Dosage: 30 MILLIGRAM, BID
     Route: 048
  2. ASPIRIN [Concomitant]
     Active Substance: ASPIRIN
  3. CLOBETASOL PROPIONATE [Concomitant]
     Active Substance: CLOBETASOL PROPIONATE

REACTIONS (6)
  - Gastrointestinal pain [Unknown]
  - Back pain [Unknown]
  - Arthralgia [Unknown]
  - Nasopharyngitis [Unknown]
  - Nausea [Unknown]
  - Drug ineffective [Unknown]
